FAERS Safety Report 8590321 (Version 2)
Quarter: 2013Q3

REPORT INFORMATION
  Report Type: Spontaneous
  Country: US (occurrence: US)
  Receive Date: 20120601
  Receipt Date: 20130701
  Transmission Date: 20140515
  Serious: Yes (Other)
  Sender: FDA-Public Use
  Company Number: US-PFIZER INC-2012129912

PATIENT
  Age: 55 Year
  Sex: Female

DRUGS (2)
  1. LYRICA [Suspect]
     Indication: GLUCOSE TOLERANCE IMPAIRED
     Dosage: 75 MG, 2X/DAY
     Route: 048
     Dates: start: 2005, end: 2005
  2. LYRICA [Suspect]
     Indication: NEUROPATHY PERIPHERAL
     Dosage: 75 MG, DAILY
     Route: 048
     Dates: start: 2005, end: 201205

REACTIONS (5)
  - Hypertension [Unknown]
  - Blood glucose increased [Unknown]
  - Blood triglycerides increased [Unknown]
  - Vision blurred [Unknown]
  - Insomnia [Unknown]
